FAERS Safety Report 12835002 (Version 5)
Quarter: 2017Q2

REPORT INFORMATION
  Report Type: Spontaneous
  Country: US (occurrence: US)
  Receive Date: 20161010
  Receipt Date: 20170629
  Transmission Date: 20170830
  Serious: Yes (Hospitalization)
  Sender: FDA-Public Use
  Company Number: US-ACTELION-A-US2016-143185

PATIENT
  Age: 53 Year
  Sex: Female

DRUGS (14)
  1. ALPRAZOLAM. [Concomitant]
     Active Substance: ALPRAZOLAM
     Dosage: 0.25 MG, QPM
     Dates: start: 20160829
  2. PREDNISONE. [Concomitant]
     Active Substance: PREDNISONE
     Dosage: 5 MG, 1 TAB, QD
     Route: 048
  3. FUROSEMIDE. [Concomitant]
     Active Substance: FUROSEMIDE
     Dosage: 40 MG, BID
     Dates: start: 20160829
  4. FUROSEMIDE. [Concomitant]
     Active Substance: FUROSEMIDE
     Dosage: UNK
     Route: 042
  5. METOLAZONE. [Concomitant]
     Active Substance: METOLAZONE
     Dosage: 2.5 MG, 3 DAYS/WEEK
     Dates: start: 20160829
  6. BENZONATATE. [Concomitant]
     Active Substance: BENZONATATE
     Dosage: 100-200 MG, Q8H PRN
     Dates: start: 20160824
  7. ALBUTEROL. [Concomitant]
     Active Substance: ALBUTEROL
     Dosage: 1-2 PUFFS, Q4-6H, PRN, 3-4 X PER DAY
     Dates: start: 20160824
  8. PROTONIX [Concomitant]
     Active Substance: PANTOPRAZOLE SODIUM
     Dosage: 40 MG, BID
     Route: 048
  9. OPSUMIT [Suspect]
     Active Substance: MACITENTAN
     Indication: PULMONARY HYPERTENSION
     Dosage: 10 MG, QD
     Route: 048
     Dates: start: 20150415, end: 20170510
  10. K TAB [Concomitant]
     Dosage: 20 MEQ, BID
     Dates: start: 20160829
  11. K TAB [Concomitant]
     Dosage: 10 MEQ, 2 TABS, BID
     Route: 048
  12. QVAR [Concomitant]
     Active Substance: BECLOMETHASONE DIPROPIONATE
     Dosage: 80 MCG/ACTUAT 2 PUFF, PO BID
     Route: 055
  13. FERROUS SULFATE. [Concomitant]
     Active Substance: FERROUS SULFATE
     Dosage: 325 MG, TID
     Dates: start: 20160909
  14. WARFARIN [Concomitant]
     Active Substance: WARFARIN
     Dosage: 2.5 MG, QD
     Dates: start: 20160321

REACTIONS (7)
  - Acute respiratory failure [Unknown]
  - Fluid overload [Recovered/Resolved]
  - Wheezing [Unknown]
  - Dyspnoea [Recovering/Resolving]
  - Cardiac failure congestive [Recovered/Resolved]
  - Oedema peripheral [Recovering/Resolving]
  - Drug ineffective [Unknown]

NARRATIVE: CASE EVENT DATE: 20160914
